FAERS Safety Report 16207729 (Version 2)
Quarter: 2019Q2

REPORT INFORMATION
  Report Type: Spontaneous
  Country: JP (occurrence: JP)
  Receive Date: 20190417
  Receipt Date: 20190425
  Transmission Date: 20190711
  Serious: Yes (Other)
  Sender: FDA-Public Use
  Company Number: JP-GLAXOSMITHKLINE-JP2019JPN065809

PATIENT
  Age: 68 Year
  Sex: Female

DRUGS (2)
  1. RELVAR ELLIPTA [Suspect]
     Active Substance: FLUTICASONE FUROATE\VILANTEROL TRIFENATATE
     Dosage: 200 ?G, QD
     Route: 055
  2. CODEINE PHOSPHATE [Concomitant]
     Active Substance: CODEINE PHOSPHATE
     Dosage: UNK

REACTIONS (1)
  - Interstitial lung disease [Unknown]
